FAERS Safety Report 6906818-5 (Version None)
Quarter: 2010Q3

REPORT INFORMATION
  Report Type: 
  Country: None (occurrence: None)
  Receive Date: 20100804
  Receipt Date: 20100727
  Transmission Date: 20110219
  Serious: Yes (Other)
  Sender: FDA-Public Use
  Company Number: US-ELI_LILLY_AND_COMPANY-US201002003679

PATIENT
  Sex: Female
  Weight: 95.238 kg

DRUGS (6)
  1. BYETTA [Suspect]
     Dosage: UNK, UNKNOWN
     Route: 065
     Dates: start: 20060601, end: 20090401
  2. METFORMIN HCL [Concomitant]
     Indication: DIABETES MELLITUS
     Dates: start: 20060101, end: 20090101
  3. GLIMEPIRIDE [Concomitant]
     Indication: DIABETES MELLITUS
     Dates: start: 20090101
  4. CALCIUM [Concomitant]
  5. IRON [Concomitant]
     Dosage: UNK, DAILY (1/D)
  6. TYLENOL                                 /SCH/ [Concomitant]
     Dosage: UNK, AS NEEDED

REACTIONS (2)
  - HYPERTRIGLYCERIDAEMIA [None]
  - PANCREATITIS [None]
